FAERS Safety Report 24355939 (Version 1)
Quarter: 2024Q3

REPORT INFORMATION
  Report Type: Report from Study
  Country: US (occurrence: US)
  Receive Date: 20240924
  Receipt Date: 20240924
  Transmission Date: 20241016
  Serious: Yes (Other)
  Sender: ABBVIE
  Company Number: US-ABBVIE-5930457

PATIENT
  Sex: Female

DRUGS (1)
  1. HUMIRA [Suspect]
     Active Substance: ADALIMUMAB
     Indication: Product used for unknown indication
     Route: 058

REACTIONS (5)
  - Respiratory failure [Recovering/Resolving]
  - Chronic obstructive pulmonary disease [Unknown]
  - Asthma [Unknown]
  - COVID-19 [Unknown]
  - Lung disorder [Recovering/Resolving]
